FAERS Safety Report 7187724-0 (Version None)
Quarter: 2010Q4

REPORT INFORMATION
  Report Type: 
  Country: None (occurrence: None)
  Receive Date: 20101222
  Receipt Date: 20101209
  Transmission Date: 20110411
  Serious: Yes (Hospitalization)
  Sender: FDA-Public Use
  Company Number: GB-GENENTECH-308984

PATIENT
  Sex: Male
  Weight: 92 kg

DRUGS (21)
  1. RITUXIMAB [Suspect]
     Indication: B-CELL LYMPHOMA
     Dosage: UNK
     Route: 042
     Dates: start: 20100813
  2. RITUXIMAB [Suspect]
     Dosage: 800 MG, SINGLE
     Route: 042
     Dates: start: 20101014, end: 20101014
  3. RITUXIMAB [Suspect]
     Dosage: UNK
     Route: 042
     Dates: start: 20101104
  4. PREDNISOLONE [Suspect]
     Indication: B-CELL LYMPHOMA
     Dosage: UNK MG, QAM
     Route: 048
     Dates: start: 20100813
  5. PREDNISOLONE [Suspect]
     Dosage: 80 MG, QD
     Route: 048
     Dates: start: 20101014, end: 20101018
  6. PREDNISOLONE [Suspect]
     Dosage: UNK
     Route: 048
     Dates: start: 20101104
  7. VINCRISTINE [Suspect]
     Indication: B-CELL LYMPHOMA
     Dosage: UNK
     Route: 042
     Dates: start: 20100813
  8. VINCRISTINE [Suspect]
     Dosage: UNK
     Route: 042
     Dates: start: 20101014, end: 20101014
  9. VINCRISTINE [Suspect]
     Dosage: UNK
     Route: 042
     Dates: start: 20101104
  10. CYCLOPHOSPHAMIDE [Suspect]
     Indication: B-CELL LYMPHOMA
     Dosage: UNK
     Route: 042
     Dates: start: 20100813
  11. CYCLOPHOSPHAMIDE [Suspect]
     Dosage: UNK MG, SINGLE
     Route: 042
     Dates: start: 20101014, end: 20101014
  12. CYCLOPHOSPHAMIDE [Suspect]
     Dosage: UNK
     Route: 042
     Dates: start: 20101104
  13. ONDANSETRON [Concomitant]
     Indication: PRODUCT USED FOR UNKNOWN INDICATION
     Dosage: UNK
     Route: 048
     Dates: start: 20101014, end: 20101014
  14. ONDANSETRON [Concomitant]
     Dosage: UNK
     Dates: start: 20101104
  15. DOMPERIDONE [Concomitant]
     Indication: PRODUCT USED FOR UNKNOWN INDICATION
     Dosage: UNK
     Route: 048
     Dates: start: 20101014
  16. DOMPERIDONE [Concomitant]
     Dosage: UNK
     Route: 048
     Dates: start: 20101104
  17. ALLOPURINOL [Concomitant]
     Indication: PRODUCT USED FOR UNKNOWN INDICATION
     Dosage: 300 MG, QAM
     Route: 048
     Dates: start: 20101014
  18. ASPIRIN [Concomitant]
     Indication: HYPERTENSION
     Dosage: 75 MG, QAM
     Route: 048
  19. BENDROFLUMETHIAZIDE [Concomitant]
     Indication: HYPERTENSION
     Dosage: 2.5 MG, QAM
     Route: 048
  20. LISINOPRIL [Concomitant]
     Indication: HYPERTENSION
     Dosage: 5 MG, QAM
     Route: 048
  21. CHLORPHENAMINE [Concomitant]
     Indication: PRODUCT USED FOR UNKNOWN INDICATION

REACTIONS (2)
  - HYPERGLYCAEMIA [None]
  - PNEUMOCYSTIS JIROVECI PNEUMONIA [None]
